FAERS Safety Report 18897427 (Version 1)
Quarter: 2021Q1

REPORT INFORMATION
  Report Type: Spontaneous
  Country: US (occurrence: US)
  Receive Date: 20210215
  Receipt Date: 20210215
  Transmission Date: 20210420
  Serious: Yes (Hospitalization)
  Sender: FDA-Public Use
  Company Number: None

PATIENT
  Age: 95 Year
  Sex: Male
  Weight: 68 kg

DRUGS (1)
  1. CASIRIVIMAB/IMDEVIMAB [Suspect]
     Active Substance: CASIRIVIMAB\IMDEVIMAB
     Indication: COVID-19
     Dosage: ?          OTHER FREQUENCY:ONCE;?
     Route: 042
     Dates: start: 20210212, end: 20210212

REACTIONS (7)
  - Pyrexia [None]
  - Tremor [None]
  - Chills [None]
  - Respiratory failure [None]
  - Chest X-ray abnormal [None]
  - COVID-19 pneumonia [None]
  - Tongue coated [None]

NARRATIVE: CASE EVENT DATE: 20210212
